FAERS Safety Report 16300150 (Version 2)
Quarter: 2020Q4

REPORT INFORMATION
  Report Type: Spontaneous
  Country: US (occurrence: US)
  Receive Date: 20190510
  Receipt Date: 20201222
  Transmission Date: 20210113
  Serious: Yes (Death, Other)
  Sender: FDA-Public Use
  Company Number: US-ASTRAZENECA-2019SE64904

PATIENT
  Age: 58 Year
  Sex: Female

DRUGS (49)
  1. PRILOSEC [Suspect]
     Active Substance: OMEPRAZOLE MAGNESIUM
     Indication: GASTROOESOPHAGEAL REFLUX DISEASE
     Route: 048
     Dates: start: 198912, end: 199001
  2. PRINIVIL [Concomitant]
     Active Substance: LISINOPRIL
     Indication: HYPERTENSION
     Dates: start: 2010, end: 2017
  3. MEPERIDINE [Concomitant]
     Active Substance: MEPERIDINE
  4. MULTIVITAMINS [Concomitant]
     Active Substance: VITAMINS
  5. VERAPAMIL [Concomitant]
     Active Substance: VERAPAMIL HYDROCHLORIDE
     Indication: HYPERTENSION
     Dates: start: 2010, end: 2017
  6. TAGAMET [Concomitant]
     Active Substance: CIMETIDINE
  7. AZITHROMYCIN ANHYDROUS. [Concomitant]
     Active Substance: AZITHROMYCIN ANHYDROUS
  8. GUAIFENESIN. [Concomitant]
     Active Substance: GUAIFENESIN
  9. INDOCIN [Concomitant]
     Active Substance: INDOMETHACIN
  10. PERCOCET [Concomitant]
     Active Substance: ACETAMINOPHEN\OXYCODONE HYDROCHLORIDE
  11. AMLODIPINE [Concomitant]
     Active Substance: AMLODIPINE BESYLATE
  12. PRILOSEC [Suspect]
     Active Substance: OMEPRAZOLE MAGNESIUM
     Indication: GASTROOESOPHAGEAL REFLUX DISEASE
     Dosage: GENERIC
     Route: 048
     Dates: start: 200012, end: 20200921
  13. LISINOPRIL. [Concomitant]
     Active Substance: LISINOPRIL
     Indication: HYPERTENSION
     Dates: start: 2010, end: 2017
  14. HYDROCHLOROTHIAZIDE. [Concomitant]
     Active Substance: HYDROCHLOROTHIAZIDE
     Indication: HYPERTENSION
     Dates: start: 2010, end: 2017
  15. VERAPAMIL [Concomitant]
     Active Substance: VERAPAMIL HYDROCHLORIDE
     Indication: ANGINA PECTORIS
     Dates: start: 2010, end: 2017
  16. ADVAIR HFA [Concomitant]
     Active Substance: FLUTICASONE PROPIONATE\SALMETEROL XINAFOATE
     Indication: ASTHMA
     Dates: start: 2010, end: 2017
  17. OXYCODONE [Concomitant]
     Active Substance: OXYCODONE
  18. NEXIUM [Suspect]
     Active Substance: ESOMEPRAZOLE MAGNESIUM
     Indication: GASTROOESOPHAGEAL REFLUX DISEASE
     Route: 048
     Dates: start: 200104, end: 200311
  19. PRILOSEC [Suspect]
     Active Substance: OMEPRAZOLE MAGNESIUM
     Indication: GASTROOESOPHAGEAL REFLUX DISEASE
     Route: 048
     Dates: start: 200001, end: 201612
  20. ATENOLOL. [Concomitant]
     Active Substance: ATENOLOL
     Indication: HYPERTENSION
     Dates: start: 2010, end: 2017
  21. ADVAIR HFA [Concomitant]
     Active Substance: FLUTICASONE PROPIONATE\SALMETEROL XINAFOATE
     Indication: BRONCHITIS CHRONIC
     Dates: start: 2010, end: 2017
  22. MONTELUKAST [Concomitant]
     Active Substance: MONTELUKAST SODIUM
     Indication: ASTHMA
     Dates: start: 2010, end: 2017
  23. MONTELUKAST [Concomitant]
     Active Substance: MONTELUKAST SODIUM
     Indication: WHEEZING
     Dates: start: 2010, end: 2017
  24. CYCLOBENZAPRINE. [Concomitant]
     Active Substance: CYCLOBENZAPRINE
  25. MEPROZINE [Concomitant]
     Active Substance: MEPERIDINE HYDROCHLORIDE\PROMETHAZINE HYDROCHLORIDE
  26. VERAPAMIL [Concomitant]
     Active Substance: VERAPAMIL HYDROCHLORIDE
     Indication: CARDIAC DISORDER
     Dates: start: 2010, end: 2017
  27. ALBUTEROL. [Concomitant]
     Active Substance: ALBUTEROL
     Indication: WHEEZING
     Dates: start: 2010, end: 2017
  28. COLCHICINE. [Concomitant]
     Active Substance: COLCHICINE
  29. FERROUS SULFATE. [Concomitant]
     Active Substance: FERROUS SULFATE
  30. CLONIDINE. [Concomitant]
     Active Substance: CLONIDINE
  31. PRILOSEC [Suspect]
     Active Substance: OMEPRAZOLE MAGNESIUM
     Indication: GASTROOESOPHAGEAL REFLUX DISEASE
     Route: 048
     Dates: start: 19970930
  32. LEVAQUIN [Concomitant]
     Active Substance: LEVOFLOXACIN
     Indication: INFECTION
     Dates: start: 2010, end: 2017
  33. ATENOLOL. [Concomitant]
     Active Substance: ATENOLOL
     Indication: ANGINA PECTORIS
     Dates: start: 2010, end: 2017
  34. NEXIUM [Suspect]
     Active Substance: ESOMEPRAZOLE MAGNESIUM
     Indication: GASTROOESOPHAGEAL REFLUX DISEASE
     Route: 048
     Dates: start: 20130924
  35. PREVACID [Suspect]
     Active Substance: LANSOPRAZOLE
     Indication: GASTROOESOPHAGEAL REFLUX DISEASE
     Route: 065
     Dates: start: 200312, end: 20200921
  36. CETRIZINE [Concomitant]
     Active Substance: CETIRIZINE HYDROCHLORIDE
     Indication: HYPERSENSITIVITY
     Dates: start: 2010, end: 2017
  37. ALBUTEROL. [Concomitant]
     Active Substance: ALBUTEROL
     Indication: DYSPNOEA
     Dates: start: 2010, end: 2017
  38. ACETAMINOPHEN. [Concomitant]
     Active Substance: ACETAMINOPHEN
  39. VITAMIN D [Concomitant]
     Active Substance: VITAMIN D NOS
  40. PEPCID [Concomitant]
     Active Substance: FAMOTIDINE
  41. ZANTAC [Concomitant]
     Active Substance: RANITIDINE HYDROCHLORIDE
  42. NASONEX [Concomitant]
     Active Substance: MOMETASONE FUROATE
  43. FLONASE [Concomitant]
     Active Substance: FLUTICASONE PROPIONATE
  44. LEVOTHYROXINE. [Concomitant]
     Active Substance: LEVOTHYROXINE
  45. PREDNISONE. [Concomitant]
     Active Substance: PREDNISONE
  46. NEXIUM [Suspect]
     Active Substance: ESOMEPRAZOLE MAGNESIUM
     Indication: GASTROOESOPHAGEAL REFLUX DISEASE
     Route: 048
     Dates: start: 200001, end: 201612
  47. PRINIVIL [Concomitant]
     Active Substance: LISINOPRIL
     Indication: CARDIAC FAILURE CONGESTIVE
     Dates: start: 2010, end: 2017
  48. PROMETHAZINE [Concomitant]
     Active Substance: PROMETHAZINE HYDROCHLORIDE
  49. WARFARIN [Concomitant]
     Active Substance: WARFARIN

REACTIONS (3)
  - Acute kidney injury [Not Recovered/Not Resolved]
  - Renal failure [Not Recovered/Not Resolved]
  - Chronic kidney disease [Not Recovered/Not Resolved]

NARRATIVE: CASE EVENT DATE: 2010
